FAERS Safety Report 10183455 (Version 1)
Quarter: 2014Q2

REPORT INFORMATION
  Report Type: Spontaneous
  Country: FR (occurrence: FR)
  Receive Date: 20140520
  Receipt Date: 20140520
  Transmission Date: 20141212
  Serious: Yes (Hospitalization)
  Sender: FDA-Public Use
  Company Number: FR-SHIRE-FR201402226

PATIENT
  Age: 49 Year
  Sex: Male

DRUGS (8)
  1. XAGRID [Suspect]
     Indication: ESSENTIAL THROMBOCYTHAEMIA
     Dosage: 0.5 MG, UNKNOWN (2.5 MG/DAY)
     Route: 048
     Dates: start: 201206
  2. VERCYTE [Suspect]
     Indication: ESSENTIAL THROMBOCYTHAEMIA
     Dosage: 3 DF, 1X/DAY:QD
     Route: 048
     Dates: start: 201208
  3. HYDREA [Suspect]
     Indication: ESSENTIAL THROMBOCYTHAEMIA
     Dosage: UNK, UNKNOWN
     Route: 065
     Dates: start: 200707, end: 201206
  4. LEVOTHYROX [Concomitant]
     Indication: THYROIDECTOMY
     Dosage: 200 ?G, 1X/DAY:QD (1 PER DAY)
     Route: 065
     Dates: start: 2011
  5. PREVISCAN                          /00261401/ [Concomitant]
     Indication: ANTIPHOSPHOLIPID SYNDROME
     Dosage: UNK, OTHER (ACCORDING TO INR)
     Route: 065
     Dates: start: 2007
  6. KARDEGIC [Concomitant]
     Indication: TRANSIENT ISCHAEMIC ATTACK
     Dosage: 75 MG (IN SINGLE DOSE SACHET), UNKNOWN
     Route: 048
     Dates: start: 2009
  7. ALTEIS [Concomitant]
     Indication: HYPERTENSION
     Dosage: 1 DF, 1X/DAY:QD
     Route: 065
     Dates: start: 2009
  8. LYRICA [Concomitant]
     Indication: RESTLESS LEGS SYNDROME
     Dosage: 150 MG, UNKNOWN (2 PER DAY)
     Route: 065
     Dates: start: 2009

REACTIONS (2)
  - Meningioma [Not Recovered/Not Resolved]
  - Haemangioma [Unknown]
